FAERS Safety Report 26111428 (Version 1)
Quarter: 2025Q4

REPORT INFORMATION
  Report Type: Report from Study
  Country: US (occurrence: US)
  Receive Date: 20251202
  Receipt Date: 20251202
  Transmission Date: 20260118
  Serious: Yes (Other)
  Sender: ALEXION PHARMACEUTICALS
  Company Number: US-ASTRAZENECA-202511NAM026647US

PATIENT
  Age: 69 Year
  Sex: Female

DRUGS (1)
  1. STRENSIQ [Suspect]
     Active Substance: ASFOTASE ALFA
     Indication: Hypophosphatasia
     Dosage: 50 MILLIGRAM, TIW

REACTIONS (16)
  - Spinal fracture [Unknown]
  - Arthralgia [Unknown]
  - Myalgia [Unknown]
  - Myofascial pain syndrome [Unknown]
  - Paraesthesia [Unknown]
  - Fatigue [Unknown]
  - Osteoarthritis [Unknown]
  - Facet joint syndrome [Unknown]
  - Bursitis [Unknown]
  - Deposit eye [Unknown]
  - Osteocalcin increased [Unknown]
  - Blood sodium decreased [Unknown]
  - Blood alkaline phosphatase decreased [Unknown]
  - Spinal stenosis [Unknown]
  - Muscle tightness [Unknown]
  - Hypermobility syndrome [Unknown]

NARRATIVE: CASE EVENT DATE: 20250414
